FAERS Safety Report 6583605-1 (Version None)
Quarter: 2010Q1

REPORT INFORMATION
  Report Type: 
  Country: None (occurrence: None)
  Receive Date: 20100216
  Receipt Date: 20100205
  Transmission Date: 20100710
  Serious: Yes (Other)
  Sender: FDA-Public Use
  Company Number: JP-PFIZER INC-2010009518

PATIENT
  Age: 67 Year
  Sex: Male

DRUGS (3)
  1. LIPITOR [Suspect]
     Indication: HYPERLIPIDAEMIA
     Dosage: 5 MG, 1X/DAY
     Route: 048
     Dates: start: 20091225, end: 20100115
  2. GASTER [Concomitant]
     Indication: GASTRITIS
     Dosage: 20 MG, UNK
     Dates: start: 20081121
  3. PROMAC /JPN/ [Concomitant]
     Indication: GASTRITIS
     Dosage: UNK
     Dates: start: 20091225

REACTIONS (1)
  - BLOOD PRESSURE INCREASED [None]
